FAERS Safety Report 15949782 (Version 1)
Quarter: 2019Q1

REPORT INFORMATION
  Report Type: Spontaneous
  Country: CN (occurrence: CN)
  Receive Date: 20190211
  Receipt Date: 20190211
  Transmission Date: 20190417
  Serious: Yes (Other)
  Sender: FDA-Public Use
  Company Number: CN-ROCHE-2258973

PATIENT
  Age: 55 Year
  Sex: Female

DRUGS (18)
  1. XELODA [Suspect]
     Active Substance: CAPECITABINE
     Dosage: FROM DAY 1 TO DAY 14
     Route: 048
     Dates: start: 20180518
  2. XELODA [Suspect]
     Active Substance: CAPECITABINE
     Route: 048
     Dates: start: 20180623
  3. LETROZOLE. [Concomitant]
     Active Substance: LETROZOLE
     Route: 048
     Dates: start: 201804
  4. HERCEPTIN [Suspect]
     Active Substance: TRASTUZUMAB
     Dosage: ON DAY 1
     Route: 041
     Dates: start: 20180623
  5. HERCEPTIN [Suspect]
     Active Substance: TRASTUZUMAB
     Dosage: ON DAY 1
     Route: 041
     Dates: start: 20181023, end: 20181204
  6. HERCEPTIN [Suspect]
     Active Substance: TRASTUZUMAB
     Indication: INVASIVE DUCTAL BREAST CARCINOMA
     Dosage: 6.7 MG/KG ON DAY 1
     Route: 041
     Dates: start: 20180518
  7. XELODA [Suspect]
     Active Substance: CAPECITABINE
     Dosage: FROM DAY 1 TO DAY 14
     Route: 048
     Dates: start: 20181023, end: 20181204
  8. PACLITAXEL. [Concomitant]
     Active Substance: PACLITAXEL
     Indication: INVASIVE DUCTAL BREAST CARCINOMA
     Dosage: ON DAY 1
     Route: 041
     Dates: start: 20180426
  9. DOCETAXEL. [Concomitant]
     Active Substance: DOCETAXEL
     Route: 065
     Dates: start: 20180924
  10. XELODA [Suspect]
     Active Substance: CAPECITABINE
     Indication: INVASIVE DUCTAL BREAST CARCINOMA
     Dosage: FROM DAY 1 TO DAY 14
     Route: 048
     Dates: start: 20180426
  11. XELODA [Suspect]
     Active Substance: CAPECITABINE
     Route: 048
     Dates: start: 20180718
  12. XELODA [Suspect]
     Active Substance: CAPECITABINE
     Route: 048
     Dates: start: 20180818
  13. TAMOXIFEN [Concomitant]
     Active Substance: TAMOXIFEN
     Route: 048
     Dates: start: 201610, end: 201804
  14. PACLITAXEL. [Concomitant]
     Active Substance: PACLITAXEL
     Dosage: 73.1 MG/M2 ON DAY 1
     Route: 041
     Dates: start: 20180518
  15. DOCETAXEL. [Concomitant]
     Active Substance: DOCETAXEL
     Route: 065
     Dates: start: 20180818
  16. XELODA [Suspect]
     Active Substance: CAPECITABINE
     Route: 048
     Dates: start: 20180924
  17. DOCETAXEL. [Concomitant]
     Active Substance: DOCETAXEL
     Indication: INVASIVE DUCTAL BREAST CARCINOMA
     Dosage: ON DAY 1
     Route: 042
     Dates: start: 20180623
  18. DOCETAXEL. [Concomitant]
     Active Substance: DOCETAXEL
     Route: 065
     Dates: start: 20180718

REACTIONS (3)
  - Ventricular hypertrophy [Unknown]
  - Left ventricular dysfunction [Unknown]
  - Electrocardiogram T wave inversion [Unknown]
